FAERS Safety Report 12221292 (Version 1)
Quarter: 2016Q1

REPORT INFORMATION
  Report Type: Other
  Country: US (occurrence: US)
  Receive Date: 20160330
  Receipt Date: 20160330
  Transmission Date: 20160526
  Serious: No
  Sender: FDA-Public Use
  Company Number: US-MYLANLABS-2015M1026827

PATIENT
  Sex: Female

DRUGS (1)
  1. ESTRADIOL. [Suspect]
     Active Substance: ESTRADIOL
     Dosage: UNK UNK, QD
     Route: 062

REACTIONS (6)
  - Drug ineffective [None]
  - Insomnia [Unknown]
  - Menstruation irregular [Unknown]
  - Anxiety [Unknown]
  - Stomatitis [Unknown]
  - Night sweats [Unknown]
